FAERS Safety Report 5278008-6 (Version None)
Quarter: 2007Q1

REPORT INFORMATION
  Report Type: 
  Country: None (occurrence: None)
  Receive Date: 20070321
  Receipt Date: 20070316
  Transmission Date: 20070707
  Serious: No
  Sender: FDA-Public Use
  Company Number: 2006BI019155

PATIENT
  Age: 55 Year
  Sex: Male

DRUGS (6)
  1. NATALIZUMAB (NATALIZUMAB) [Suspect]
     Indication: MULTIPLE SCLEROSIS
     Dosage: 300 MG; QM; IV
     Route: 042
     Dates: start: 20061012
  2. SIMVASTATIN [Concomitant]
  3. ANTIHYPERTENSIVES [Concomitant]
  4. MUSCLE RELAXANTS [Concomitant]
  5. NSAIDS [Concomitant]
  6. VIGIL [Concomitant]

REACTIONS (1)
  - CYSTITIS [None]
